FAERS Safety Report 11686867 (Version 1)
Quarter: 2015Q4

REPORT INFORMATION
  Report Type: Spontaneous
  Country: US (occurrence: US)
  Receive Date: 20151030
  Receipt Date: 20151030
  Transmission Date: 20160304
  Serious: Yes (Other)
  Sender: FDA-Public Use
  Company Number: US-SA-2015SA168244

PATIENT
  Sex: Male

DRUGS (2)
  1. AUBAGIO [Suspect]
     Active Substance: TERIFLUNOMIDE
     Indication: MULTIPLE SCLEROSIS
     Route: 048
     Dates: start: 20150714
  2. AUBAGIO [Suspect]
     Active Substance: TERIFLUNOMIDE
     Indication: MULTIPLE SCLEROSIS
     Route: 048
     Dates: start: 20150701, end: 20150705

REACTIONS (6)
  - Blepharospasm [Recovered/Resolved with Sequelae]
  - Malaise [Recovering/Resolving]
  - Paraesthesia [Recovered/Resolved with Sequelae]
  - Rash [Recovering/Resolving]
  - Systemic lupus erythematosus [Recovered/Resolved with Sequelae]
  - Peripheral swelling [Recovered/Resolved with Sequelae]

NARRATIVE: CASE EVENT DATE: 20150702
